FAERS Safety Report 5300227-0 (Version None)
Quarter: 2007Q2

REPORT INFORMATION
  Report Type: 
  Country: None (occurrence: None)
  Receive Date: 20070411
  Receipt Date: 20070327
  Transmission Date: 20071010
  Serious: Yes (Hospitalization)
  Sender: FDA-Public Use
  Company Number: 2007PV000012

PATIENT
  Age: 76 Year
  Sex: Male

DRUGS (8)
  1. DEPOCYT [Suspect]
     Indication: DISEASE RECURRENCE
     Dosage: 50 MG; INTH
     Route: 037
  2. DEPOCYT [Suspect]
     Indication: LYMPHOMA
     Dosage: 50 MG; INTH
     Route: 037
  3. MONOPRIL [Concomitant]
  4. LUNESTA [Concomitant]
  5. FLOMAX [Concomitant]
  6. AVELOX [Concomitant]
  7. PREDNISONE TAB [Concomitant]
  8. ASPIRIN [Concomitant]

REACTIONS (2)
  - DEAFNESS [None]
  - DIABETES INSIPIDUS [None]
